FAERS Safety Report 10654769 (Version 5)
Quarter: 2016Q1

REPORT INFORMATION
  Report Type: Spontaneous
  Country: FR (occurrence: FR)
  Receive Date: 20141216
  Receipt Date: 20160325
  Transmission Date: 20160525
  Serious: Yes (Hospitalization)
  Sender: FDA-Public Use
  Company Number: PHHY2014FR159144

PATIENT
  Age: 9 Year
  Sex: Male
  Weight: 24 kg

DRUGS (17)
  1. EXJADE [Suspect]
     Active Substance: DEFERASIROX
     Indication: APLASTIC ANAEMIA
     Dosage: 500 MG, QD (20 MG PER KG)
     Route: 048
     Dates: start: 20140103, end: 20140105
  2. EXJADE [Suspect]
     Active Substance: DEFERASIROX
     Indication: HYPERFERRITINAEMIA
  3. NEORAL [Suspect]
     Active Substance: CYCLOSPORINE
     Indication: APLASIA
     Dosage: 100 MG, BID
     Route: 048
     Dates: start: 20130604, end: 20131229
  4. ZOVIRAX [Concomitant]
     Active Substance: ACYCLOVIR
     Indication: PRODUCT USED FOR UNKNOWN INDICATION
     Dosage: 200 MG, TID
     Route: 048
     Dates: end: 20140107
  5. TRIFLUCAN [Concomitant]
     Active Substance: FLUCONAZOLE
     Indication: PRODUCT USED FOR UNKNOWN INDICATION
     Dosage: 6 MG/KG, QD
     Route: 065
     Dates: end: 20140107
  6. TRIFLUCAN [Concomitant]
     Active Substance: FLUCONAZOLE
     Dosage: 130 MG, UNK
     Route: 048
  7. VANCOMYCINE MYLAN//VANCOMYCIN HYDROCHLORIDE [Suspect]
     Active Substance: VANCOMYCIN HYDROCHLORIDE
     Indication: FEBRILE INFECTION
     Dosage: 40 MG/KG, QD
     Route: 042
     Dates: start: 20140102, end: 20140105
  8. CICLOSPORIN [Concomitant]
     Active Substance: CYCLOSPORINE
     Indication: APLASTIC ANAEMIA
     Dosage: 150 MG, BID
     Route: 048
     Dates: start: 201305
  9. BACTRIM [Concomitant]
     Active Substance: SULFAMETHOXAZOLE\TRIMETHOPRIM
     Indication: PRODUCT USED FOR UNKNOWN INDICATION
     Dosage: 25 MG/KG, QW3
     Route: 065
     Dates: end: 20140106
  10. NEORAL [Suspect]
     Active Substance: CYCLOSPORINE
     Dosage: 150 MG, BID (12.5 MG/KG/DAY)
     Route: 048
     Dates: start: 20131230, end: 20140105
  11. ORACILLINE [Concomitant]
     Active Substance: PENICILLIN V
     Indication: PRODUCT USED FOR UNKNOWN INDICATION
     Dosage: 600000 IU, BID
     Route: 048
  12. AMIKACINE//AMIKACIN [Suspect]
     Active Substance: AMIKACIN
     Indication: FEBRILE INFECTION
     Dosage: 15 MG/KG, QD
     Route: 042
     Dates: start: 20140102, end: 20140103
  13. ALDACTONE [Concomitant]
     Active Substance: SPIRONOLACTONE
     Indication: PRODUCT USED FOR UNKNOWN INDICATION
     Dosage: 50 MG, QOD
     Route: 065
  14. ATGAM [Concomitant]
     Active Substance: EQUINE THYMOCYTE IMMUNE GLOBULIN
     Indication: APLASTIC ANAEMIA
     Dosage: 40 MG/KG, QD
     Route: 065
     Dates: start: 20130530, end: 20130602
  15. CEFTAZIDIME PANPHARMA [Suspect]
     Active Substance: CEFTAZIDIME
     Indication: FEBRILE INFECTION
     Dosage: 150 MG/KG, QD
     Route: 042
     Dates: start: 20140102, end: 20140107
  16. AMLODIPINE [Concomitant]
     Active Substance: AMLODIPINE BESYLATE
     Indication: PRODUCT USED FOR UNKNOWN INDICATION
     Dosage: 8 MG, QD
     Route: 065
  17. AMLOR [Concomitant]
     Active Substance: AMLODIPINE BESYLATE
     Indication: PRODUCT USED FOR UNKNOWN INDICATION
     Dosage: 8 MG, UNK
     Route: 048

REACTIONS (13)
  - Oliguria [Recovered/Resolved]
  - Renal impairment [Recovered/Resolved]
  - Haemoglobin decreased [Unknown]
  - Hyperferritinaemia [None]
  - Haemodialysis [None]
  - Iron overload [None]
  - Transfusion related complication [None]
  - Acute kidney injury [Recovered/Resolved]
  - Blood albumin decreased [Unknown]
  - Blood creatinine increased [Recovered/Resolved]
  - Treatment failure [Unknown]
  - Staphylococcal sepsis [Unknown]
  - Blood urea increased [Recovered/Resolved]

NARRATIVE: CASE EVENT DATE: 20140105
